FAERS Safety Report 11064729 (Version 3)
Quarter: 2015Q2

REPORT INFORMATION
  Report Type: Spontaneous
  Country: DE (occurrence: DE)
  Receive Date: 20150424
  Receipt Date: 20150603
  Transmission Date: 20150821
  Serious: Yes (Other)
  Sender: FDA-Public Use
  Company Number: PHHY2015DE014800

PATIENT
  Sex: Male
  Weight: 90 kg

DRUGS (2)
  1. ZOMETA [Suspect]
     Active Substance: ZOLEDRONIC ACID
     Indication: PLASMA CELL MYELOMA
     Dosage: 4 MG, QMO (MONTHLY)
     Route: 041
     Dates: start: 2011
  2. REVLIMID [Concomitant]
     Active Substance: LENALIDOMIDE
     Indication: PLASMA CELL MYELOMA
     Dosage: 10/21/28
     Route: 065
     Dates: start: 2012

REACTIONS (8)
  - Erythema [Recovered/Resolved]
  - Osteonecrosis of jaw [Recovered/Resolved]
  - Bone lesion [Recovered/Resolved]
  - Pulpitis dental [Recovered/Resolved]
  - Exposed bone in jaw [Recovered/Resolved]
  - Swelling face [Recovered/Resolved]
  - Tooth abscess [Recovered/Resolved]
  - Feeling hot [Recovered/Resolved]

NARRATIVE: CASE EVENT DATE: 201412
